FAERS Safety Report 20161210 (Version 3)
Quarter: 2024Q3

REPORT INFORMATION
  Report Type: Report from Study
  Country: CA (occurrence: CA)
  Receive Date: 20211208
  Receipt Date: 20240721
  Transmission Date: 20241016
  Serious: Yes (Other)
  Sender: NOVARTIS
  Company Number: CA-NOVARTISPH-PHHY2018CA102119

PATIENT
  Sex: Female

DRUGS (1)
  1. GILENYA [Suspect]
     Active Substance: FINGOLIMOD HYDROCHLORIDE
     Indication: Relapsing-remitting multiple sclerosis
     Dosage: UNK, QD
     Route: 048
     Dates: start: 20180904

REACTIONS (16)
  - Neurogenic bladder [Recovering/Resolving]
  - Neuropathy peripheral [Unknown]
  - Multiple sclerosis [Unknown]
  - Abdominal distension [Unknown]
  - Obstructive sleep apnoea syndrome [Unknown]
  - Gait disturbance [Unknown]
  - Head discomfort [Unknown]
  - Balance disorder [Unknown]
  - Sensory loss [Unknown]
  - Hypoaesthesia [Unknown]
  - Peripheral coldness [Unknown]
  - Mydriasis [Unknown]
  - Dizziness [Unknown]
  - Nausea [Unknown]
  - Fatigue [Unknown]
  - Cough [Unknown]

NARRATIVE: CASE EVENT DATE: 20180101
